FAERS Safety Report 5815462-2 (Version None)
Quarter: 2008Q3

REPORT INFORMATION
  Report Type: 
  Country: None (occurrence: None)
  Receive Date: 20080718
  Receipt Date: 20080707
  Transmission Date: 20090109
  Serious: Yes (Other)
  Sender: FDA-Public Use
  Company Number: US-PFIZER INC-2008056961

PATIENT
  Sex: Female
  Weight: 72.727 kg

DRUGS (1)
  1. CHANTIX [Suspect]
     Indication: SMOKING CESSATION THERAPY
     Route: 048
     Dates: start: 20070401, end: 20080612

REACTIONS (4)
  - ARRHYTHMIA [None]
  - MYOCARDIAL INFARCTION [None]
  - NAUSEA [None]
  - ROAD TRAFFIC ACCIDENT [None]
